FAERS Safety Report 7503597-8 (Version None)
Quarter: 2011Q2

REPORT INFORMATION
  Report Type: 
  Country: None (occurrence: None)
  Receive Date: 20110524
  Receipt Date: 20110524
  Transmission Date: 20111010
  Serious: Yes (Hospitalization)
  Sender: FDA-Public Use
  Company Number: None

PATIENT
  Age: 38 Year
  Sex: Female
  Weight: 82.4 kg

DRUGS (2)
  1. CLOZAPINE [Suspect]
     Indication: PSYCHOTIC DISORDER
     Dosage: TITRATION: 25 TO 150MG DAILY-HS PO
     Route: 048
     Dates: start: 20110211, end: 20110218
  2. CLOZAPINE [Suspect]
     Dates: start: 20110426, end: 20110523

REACTIONS (27)
  - DRY MOUTH [None]
  - RENAL FAILURE [None]
  - NEUROLEPTIC MALIGNANT SYNDROME [None]
  - DISORIENTATION [None]
  - MENTAL STATUS CHANGES [None]
  - AUTONOMIC NERVOUS SYSTEM IMBALANCE [None]
  - QRS AXIS ABNORMAL [None]
  - BUNDLE BRANCH BLOCK RIGHT [None]
  - HYPERNATRAEMIA [None]
  - METABOLIC ACIDOSIS [None]
  - PLEURAL EFFUSION [None]
  - MUSCULAR WEAKNESS [None]
  - RESPIRATORY RATE INCREASED [None]
  - ELECTROLYTE IMBALANCE [None]
  - SEROTONIN SYNDROME [None]
  - AGITATION [None]
  - CATATONIA [None]
  - HEART RATE INCREASED [None]
  - GESTATIONAL DIABETES [None]
  - RESPIRATORY ACIDOSIS [None]
  - PNEUMONIA NECROTISING [None]
  - PSEUDOMONAS TEST POSITIVE [None]
  - PREGNANCY [None]
  - ELECTROCARDIOGRAM QT PROLONGED [None]
  - HYPOKALAEMIA [None]
  - TOXICITY TO VARIOUS AGENTS [None]
  - DRUG EXPOSURE DURING PREGNANCY [None]
